FAERS Safety Report 11731782 (Version 1)
Quarter: 2015Q4

REPORT INFORMATION
  Report Type: Spontaneous
  Country: US (occurrence: US)
  Receive Date: 20151110
  Receipt Date: 20151110
  Transmission Date: 20160304
  Serious: No
  Sender: FDA-Public Use
  Company Number: US-ELI_LILLY_AND_COMPANY-US201201000362

PATIENT
  Age: 57 Year
  Sex: Female

DRUGS (2)
  1. FORTEO [Suspect]
     Active Substance: TERIPARATIDE
     Dosage: 20 UG, UNK
     Dates: start: 20111223, end: 20120123
  2. FORTEO [Suspect]
     Active Substance: TERIPARATIDE
     Indication: OSTEOPOROSIS
     Dosage: 20 UG, QD
     Dates: start: 201007, end: 201008

REACTIONS (9)
  - Drug hypersensitivity [Unknown]
  - Visual impairment [Unknown]
  - Eye haemorrhage [Recovering/Resolving]
  - Pelvic discomfort [Unknown]
  - Pelvic pain [Unknown]
  - Medication error [Unknown]
  - Renal cyst [Unknown]
  - Oral pain [Recovered/Resolved]
  - Headache [Unknown]

NARRATIVE: CASE EVENT DATE: 20111215
